FAERS Safety Report 22780524 (Version 3)
Quarter: 2023Q4

REPORT INFORMATION
  Report Type: Other
  Country: US (occurrence: None)
  Receive Date: 20230803
  Receipt Date: 20231010
  Transmission Date: 20240109
  Serious: Yes (Hospitalization)
  Sender: FDA-Public Use
  Company Number: US-ROCHE-3368605

PATIENT
  Age: 53 Year
  Sex: Female
  Weight: 121.4 kg

DRUGS (21)
  1. RITUXAN [Suspect]
     Active Substance: RITUXIMAB
     Indication: Neuromyelitis optica spectrum disorder
     Route: 041
     Dates: start: 20170519
  2. BUPROPION [Concomitant]
     Active Substance: BUPROPION
     Dosage: 150 UNITS, DAILY
     Route: 048
  3. CELECOXIB [Concomitant]
     Active Substance: CELECOXIB
     Route: 048
  4. CYCLOBENZAPRINE [Concomitant]
     Active Substance: CYCLOBENZAPRINE
     Dosage: DAILY
     Route: 048
  5. ERGOCALCIFEROL [Concomitant]
     Active Substance: ERGOCALCIFEROL
     Route: 048
  6. FLUTICASONE [Concomitant]
     Active Substance: FLUTICASONE
     Dosage: 2 PUFFS, INHALATION
  7. FOLIC ACID [Concomitant]
     Active Substance: FOLIC ACID
  8. LEVOTHYROXINE [Concomitant]
     Active Substance: LEVOTHYROXINE
  9. LORAZEPAM [Concomitant]
     Active Substance: LORAZEPAM
  10. MAGNESIUM GLUCONATE [Concomitant]
     Active Substance: MAGNESIUM GLUCONATE
  11. MONTELUKAST [Concomitant]
     Active Substance: MONTELUKAST SODIUM
  12. PHENAZOPYRIDINE [Concomitant]
     Active Substance: PHENAZOPYRIDINE
  13. PSYLLIUM [Concomitant]
     Active Substance: PLANTAGO SEED
  14. SACCHAROMYCES BOULARDII LYOPHYLIZED [Concomitant]
  15. TIOTROPIUM [Concomitant]
     Active Substance: TIOTROPIUM
  16. RABEPRAZOLE [Concomitant]
     Active Substance: RABEPRAZOLE
  17. DOXYCYCLINE [Concomitant]
     Active Substance: DOXYCYCLINE
  18. CEFTRIAXONE [Concomitant]
     Active Substance: CEFTRIAXONE\CEFTRIAXONE SODIUM
  19. AZITHROMYCIN [Concomitant]
     Active Substance: AZITHROMYCIN
  20. CRANBERRY [Concomitant]
     Active Substance: CRANBERRY
  21. ALBUTEROL SULFATE [Concomitant]
     Active Substance: ALBUTEROL SULFATE

REACTIONS (2)
  - Pneumonia bacterial [Recovered/Resolved with Sequelae]
  - Acute respiratory failure [Recovered/Resolved with Sequelae]

NARRATIVE: CASE EVENT DATE: 20230426
